FAERS Safety Report 7548595-3 (Version None)
Quarter: 2011Q2

REPORT INFORMATION
  Report Type: 
  Country: None (occurrence: None)
  Receive Date: 20110615
  Receipt Date: 20110606
  Transmission Date: 20111010
  Serious: Yes (Hospitalization, Other)
  Sender: FDA-Public Use
  Company Number: US-BRISTOL-MYERS SQUIBB COMPANY-15823925

PATIENT
  Age: 66 Year
  Sex: Male

DRUGS (3)
  1. ETOPOSIDE [Suspect]
     Indication: AESTHESIONEUROBLASTOMA
     Dosage: DOSAGE: ON DAYS 1-3 AND 23-25
  2. CISPLATIN [Suspect]
     Indication: AESTHESIONEUROBLASTOMA
     Dosage: DOSAGE: ON DAY 1 AND 23
  3. CARBOPLATIN [Suspect]
     Indication: AESTHESIONEUROBLASTOMA
     Dosage: 6.0 MG/ML/MIN ON DAY 23.

REACTIONS (6)
  - INAPPROPRIATE ANTIDIURETIC HORMONE SECRETION [None]
  - PNEUMONIA KLEBSIELLA [None]
  - DERMATITIS [None]
  - MUCOSAL INFLAMMATION [None]
  - SOFT TISSUE INFECTION [None]
  - NEUTROPENIC SEPSIS [None]
